FAERS Safety Report 7895034-9 (Version None)
Quarter: 2011Q4

REPORT INFORMATION
  Report Type: 
  Country: None (occurrence: None)
  Receive Date: 20111102
  Receipt Date: 20111018
  Transmission Date: 20120403
  Serious: Yes (Other)
  Sender: FDA-Public Use
  Company Number: 2011P1009373

PATIENT
  Age: 65 Year
  Sex: Female
  Weight: 83.9154 kg

DRUGS (9)
  1. SOLODYN [Suspect]
     Indication: ACNE
     Dosage: 115 MG; QD; PO
     Route: 048
     Dates: start: 20110701, end: 20110830
  2. VERAPAMIL [Concomitant]
  3. PUMP [Concomitant]
  4. EFFEXOR [Concomitant]
  5. NOVALOG INSULIN [Concomitant]
  6. ADAPALENE [Suspect]
     Indication: ACNE
     Dosage: 1 PCT; 5 TIMES WK; TOP
     Route: 061
     Dates: start: 20110701
  7. PRINZIDE [Concomitant]
  8. PRINIVIL [Concomitant]
  9. PREDNISONE [Suspect]
     Dosage: 20 MG;
     Dates: end: 20110823

REACTIONS (8)
  - DIZZINESS [None]
  - WRONG DRUG ADMINISTERED [None]
  - INAPPROPRIATE SCHEDULE OF DRUG ADMINISTRATION [None]
  - HYPOAESTHESIA [None]
  - CONFUSIONAL STATE [None]
  - BLOOD GLUCOSE INCREASED [None]
  - DRUG DISPENSING ERROR [None]
  - LETHARGY [None]
